FAERS Safety Report 10263076 (Version 2)
Quarter: 2014Q2

REPORT INFORMATION
  Report Type: Report from Study
  Country: US (occurrence: US)
  Receive Date: 20140626
  Receipt Date: 20140626
  Transmission Date: 20141212
  Serious: Yes (Other)
  Sender: FDA-Public Use
  Company Number: US-MYLANLABS-2014S1000539

PATIENT
  Age: 59 Year
  Sex: Male

DRUGS (7)
  1. CLOZAPINE TABLETS [Suspect]
     Indication: SCHIZOPHRENIA
     Route: 048
     Dates: start: 201102, end: 201401
  2. RISPERDAL [Concomitant]
     Route: 030
  3. COGENTIN [Concomitant]
     Route: 048
  4. SYNTHROID [Concomitant]
     Route: 048
  5. ASPIRIN [Concomitant]
     Route: 048
  6. GLIPIZIDE EXTENDED-RELEASE [Concomitant]
     Route: 048
  7. SIMVASTATIN [Concomitant]
     Route: 048

REACTIONS (2)
  - Granulocytopenia [Recovered/Resolved]
  - Leukopenia [Recovered/Resolved]
